FAERS Safety Report 16786778 (Version 1)
Quarter: 2019Q3

REPORT INFORMATION
  Report Type: Report from Study
  Country: US (occurrence: US)
  Receive Date: 20190909
  Receipt Date: 20190909
  Transmission Date: 20191005
  Serious: Yes (Hospitalization)
  Sender: FDA-Public Use
  Company Number: US-MALLINCKRODT-T201906069

PATIENT
  Age: 61 Year
  Sex: Female
  Weight: 63 kg

DRUGS (3)
  1. CELLCEPT [Concomitant]
     Active Substance: MYCOPHENOLATE MOFETIL\MYCOPHENOLATE MOFETIL HYDROCHLORIDE
     Indication: PRODUCT USED FOR UNKNOWN INDICATION
     Dosage: UNK
     Route: 065
  2. REPOSITORY CORTICOTROPIN INJECTION [Suspect]
     Active Substance: CORTICOTROPIN
     Indication: SYSTEMIC LUPUS ERYTHEMATOSUS
     Dosage: 1.0 ML, (IN THIGH OR SIDE)TWICE WEEKLY, THURSDAYS AND SUNDAYS
     Route: 065
  3. POTASSIUM [Concomitant]
     Active Substance: POTASSIUM
     Indication: PRODUCT USED FOR UNKNOWN INDICATION
     Dosage: UNK
     Route: 065

REACTIONS (6)
  - Visual impairment [Unknown]
  - Product dose omission [Unknown]
  - Heart rate increased [Unknown]
  - Blood potassium decreased [Unknown]
  - Diarrhoea [Unknown]
  - Vomiting [Unknown]

NARRATIVE: CASE EVENT DATE: 2019
